FAERS Safety Report 5633949-2 (Version None)
Quarter: 2008Q1

REPORT INFORMATION
  Report Type: 
  Country: None (occurrence: None)
  Receive Date: 20080215
  Receipt Date: 20080207
  Transmission Date: 20080703
  Serious: Yes (Death, Hospitalization, Other)
  Sender: FDA-Public Use
  Company Number: 2007SP017488

PATIENT
  Age: 56 Year
  Sex: Male
  Weight: 67 kg

DRUGS (10)
  1. TEMODAL [Suspect]
     Indication: GLIOBLASTOMA MULTIFORME
     Dosage: 150 MG/M2; QD; PO, 200 MG/M2; QD; PO, 200 MG/M2; QD; PO
     Route: 048
     Dates: start: 20070219, end: 20070223
  2. TEMODAL [Suspect]
     Indication: GLIOBLASTOMA MULTIFORME
     Dosage: 150 MG/M2; QD; PO, 200 MG/M2; QD; PO, 200 MG/M2; QD; PO
     Route: 048
     Dates: start: 20070319, end: 20070323
  3. TEMODAL [Suspect]
     Indication: GLIOBLASTOMA MULTIFORME
     Dosage: 150 MG/M2; QD; PO, 200 MG/M2; QD; PO, 200 MG/M2; QD; PO
     Route: 048
     Dates: start: 20070419, end: 20070423
  4. LIPITOR [Concomitant]
  5. FAMOTIDINE [Concomitant]
  6. DEPAKENE [Concomitant]
  7. BETAMETHASONE [Concomitant]
  8. ZOFRAN ZYDIS [Concomitant]
  9. DUROTEP [Concomitant]
  10. CEFAMEZIN [Concomitant]

REACTIONS (17)
  - ALTERED STATE OF CONSCIOUSNESS [None]
  - BLOOD LACTATE DEHYDROGENASE INCREASED [None]
  - BLOOD PRESSURE DECREASED [None]
  - DYSPHAGIA [None]
  - HAEMATOCRIT DECREASED [None]
  - HAEMOGLOBIN DECREASED [None]
  - LEUKAEMIA [None]
  - METASTASES TO BONE MARROW [None]
  - METASTASES TO LIVER [None]
  - METASTASES TO PLEURA [None]
  - METASTASES TO SPINE [None]
  - METASTASES TO SPLEEN [None]
  - METASTATIC NEOPLASM [None]
  - PHARYNGEAL ABSCESS [None]
  - PLATELET COUNT DECREASED [None]
  - RED BLOOD CELL COUNT DECREASED [None]
  - WHITE BLOOD CELL COUNT DECREASED [None]
